FAERS Safety Report 9879209 (Version 1)
Quarter: 2014Q1

REPORT INFORMATION
  Report Type: Spontaneous
  Country: US (occurrence: US)
  Receive Date: 20140206
  Receipt Date: 20140206
  Transmission Date: 20141002
  Serious: Yes (Other)
  Sender: FDA-Public Use
  Company Number: PHEH2014US002209

PATIENT
  Sex: Female

DRUGS (15)
  1. TOBI [Suspect]
     Indication: PSEUDOMONAS INFECTION
     Dosage: UNK UKN, UNK
  2. KEPPRA [Concomitant]
     Dosage: UNK UKN, UNK
  3. ONFI [Concomitant]
     Dosage: UNK UKN, UNK
  4. ZONISAMIDE [Concomitant]
     Dosage: UNK UKN, UNK
  5. GABAPENTIN [Concomitant]
     Dosage: UNK UKN, UNK
  6. BACLOFEN [Concomitant]
     Dosage: UNK UKN, UNK
  7. PREVACID [Concomitant]
     Dosage: UNK UKN, UNK
  8. HIZENTRA [Concomitant]
     Dosage: UNK UKN, UNK
  9. LEUCOVORIN [Concomitant]
     Dosage: UNK UKN, UNK
  10. PULMICORT [Concomitant]
     Dosage: UNK UKN, UNK
  11. MUCOMYST [Concomitant]
     Dosage: UNK UKN, UNK
  12. ATROVENT [Concomitant]
     Dosage: UNK UKN, UNK
  13. ALBUTEROL [Concomitant]
     Dosage: UNK UKN, UNK
  14. FLUCONAZOLE [Concomitant]
     Dosage: UNK UKN, UNK
  15. CIPROFLOXACIN [Concomitant]
     Dosage: UNK UKN, UNK

REACTIONS (1)
  - Pseudomonas infection [Unknown]
